FAERS Safety Report 4590352-4 (Version None)
Quarter: 2005Q1

REPORT INFORMATION
  Report Type: 
  Country: None (occurrence: None)
  Receive Date: 20050217
  Receipt Date: 20050211
  Transmission Date: 20050727
  Serious: Yes (Hospitalization, Other)
  Sender: FDA-Public Use
  Company Number: KII-2005-0015106

PATIENT
  Age: 21 Year
  Sex: Male

DRUGS (5)
  1. OXYCONTIN [Suspect]
     Dosage: INTRAVENOUS
     Route: 042
  2. HYDROMORPHONE HCL [Suspect]
     Dosage: ORAL
     Route: 048
  3. ACETAMINOPHEN AND OXYCODONE HCL [Suspect]
     Dosage: ORAL
     Route: 048
  4. COCAINE (COCAINE) [Suspect]
     Dosage: INHALATION
     Route: 055
  5. BENZODIAZEPINE DERIVATIVES() [Suspect]

REACTIONS (6)
  - BLOOD ALCOHOL ABNORMAL [None]
  - BLOOD CREATINE PHOSPHOKINASE INCREASED [None]
  - BLOOD CREATINE PHOSPHOKINASE MB INCREASED [None]
  - CONVULSION [None]
  - POLYSUBSTANCE ABUSE [None]
  - TACHYCARDIA [None]
